FAERS Safety Report 5623520-0 (Version None)
Quarter: 2008Q1

REPORT INFORMATION
  Report Type: 
  Country: None (occurrence: None)
  Receive Date: 20080212
  Receipt Date: 20080131
  Transmission Date: 20080703
  Serious: Yes (Other)
  Sender: FDA-Public Use
  Company Number: US-PFIZER INC-2008010916

PATIENT
  Sex: Female
  Weight: 54.5 kg

DRUGS (5)
  1. CHANTIX [Suspect]
     Indication: SMOKING CESSATION THERAPY
     Dates: start: 20070701, end: 20080114
  2. PREDNISONE TAB [Concomitant]
     Indication: RHEUMATOID ARTHRITIS
  3. AMARYL [Concomitant]
  4. ACYCLOVIR [Concomitant]
  5. LEXAPRO [Concomitant]

REACTIONS (10)
  - AGGRESSION [None]
  - DELUSIONAL PERCEPTION [None]
  - DEPRESSED MOOD [None]
  - FEELING ABNORMAL [None]
  - HALLUCINATION [None]
  - INTENTIONAL OVERDOSE [None]
  - MALAISE [None]
  - PNEUMONIA ASPIRATION [None]
  - SUICIDAL IDEATION [None]
  - SUICIDE ATTEMPT [None]
